FAERS Safety Report 6639067-9 (Version None)
Quarter: 2010Q1

REPORT INFORMATION
  Report Type: 
  Country: None (occurrence: None)
  Receive Date: 20100317
  Receipt Date: 20100316
  Transmission Date: 20100710
  Serious: Yes (Other)
  Sender: FDA-Public Use
  Company Number: JP-SANOFI-AVENTIS-200912949JP

PATIENT
  Age: 65 Year
  Sex: Female
  Weight: 53.5 kg

DRUGS (7)
  1. LEFLUNOMIDE [Suspect]
     Indication: RHEUMATOID ARTHRITIS
     Route: 048
     Dates: start: 20070124, end: 20071004
  2. RHEUMATREX [Suspect]
     Indication: RHEUMATOID ARTHRITIS
     Route: 048
     Dates: start: 20040401, end: 20071004
  3. PREDNISOLONE [Concomitant]
     Route: 048
     Dates: start: 20040401
  4. LOPRESSOR [Concomitant]
     Route: 048
     Dates: start: 20040401
  5. ALTAT [Concomitant]
     Route: 048
     Dates: start: 20040401
  6. DORAL [Concomitant]
     Route: 048
     Dates: start: 20070124
  7. HALCION [Concomitant]
     Route: 048
     Dates: start: 20070919, end: 20071003

REACTIONS (1)
  - HEPATIC FUNCTION ABNORMAL [None]
